FAERS Safety Report 10225793 (Version 1)
Quarter: 2014Q2

REPORT INFORMATION
  Report Type: Spontaneous
  Country: US (occurrence: US)
  Receive Date: 20140609
  Receipt Date: 20140609
  Transmission Date: 20141212
  Serious: Yes (Other)
  Sender: FDA-Public Use
  Company Number: US-ASTELLAS-2013US009047

PATIENT
  Age: 57 Year
  Sex: Female

DRUGS (1)
  1. PROGRAF [Suspect]
     Indication: PANCREAS TRANSPLANT
     Dosage: 2 MG IN MORNING AND 3MG IN EVENING
     Route: 048
     Dates: start: 20091105

REACTIONS (4)
  - Off label use [Unknown]
  - Gastrointestinal haemorrhage [Unknown]
  - Post transplant lymphoproliferative disorder [Unknown]
  - Cytomegalovirus infection [Unknown]
